FAERS Safety Report 25623043 (Version 1)
Quarter: 2025Q3

REPORT INFORMATION
  Report Type: Spontaneous
  Country: CN (occurrence: CN)
  Receive Date: 20250730
  Receipt Date: 20250730
  Transmission Date: 20251020
  Serious: Yes (Hospitalization, Other)
  Sender: NOVO NORDISK
  Company Number: CN-NOVOPROD-1485182

PATIENT
  Age: 64 Year
  Sex: Male

DRUGS (6)
  1. NOVORAPID [Suspect]
     Active Substance: INSULIN ASPART
     Indication: Diabetes mellitus
     Dates: start: 20231127
  2. LANTUS [Concomitant]
     Active Substance: INSULIN GLARGINE
     Indication: Diabetes mellitus
     Dates: start: 20231127
  3. NIFEDIPINE [Concomitant]
     Active Substance: NIFEDIPINE
     Indication: Hypertension
     Dates: start: 20231127
  4. VALSARTAN [Concomitant]
     Active Substance: VALSARTAN
     Indication: Hypertension
     Dates: start: 20231127
  5. LINPERLISIB [Concomitant]
     Active Substance: LINPERLISIB
     Dosage: 40 MG, QD
     Route: 048
     Dates: start: 20241209
  6. LINPERLISIB [Concomitant]
     Active Substance: LINPERLISIB
     Indication: Peripheral T-cell lymphoma unspecified
     Dosage: 80 MG, QD
     Route: 048

REACTIONS (1)
  - Diabetic ketoacidosis [Unknown]
